FAERS Safety Report 25751291 (Version 1)
Quarter: 2025Q3

REPORT INFORMATION
  Report Type: Spontaneous
  Country: JP (occurrence: JP)
  Receive Date: 20250902
  Receipt Date: 20250902
  Transmission Date: 20251021
  Serious: Yes (Death, Other)
  Sender: AMGEN
  Company Number: JP-AMGEN-JPNSP2025171363

PATIENT
  Age: 5 Decade

DRUGS (6)
  1. BEVACIZUMAB [Suspect]
     Active Substance: BEVACIZUMAB
     Indication: Breast cancer metastatic
     Route: 065
  2. BEVACIZUMAB [Suspect]
     Active Substance: BEVACIZUMAB
     Route: 065
  3. TAMOXIFEN [Concomitant]
     Active Substance: TAMOXIFEN
  4. PACLITAXEL [Concomitant]
     Active Substance: PACLITAXEL
     Indication: Breast cancer metastatic
  5. PACLITAXEL [Concomitant]
     Active Substance: PACLITAXEL
  6. LETROZOLE [Concomitant]
     Active Substance: LETROZOLE

REACTIONS (5)
  - Death [Fatal]
  - Hepatic failure [Unknown]
  - Hepatic encephalopathy [Unknown]
  - Tumour marker increased [Unknown]
  - Febrile neutropenia [Unknown]
